FAERS Safety Report 16986882 (Version 1)
Quarter: 2019Q4

REPORT INFORMATION
  Report Type: Spontaneous
  Country: FR (occurrence: FR)
  Receive Date: 20191102
  Receipt Date: 20191102
  Transmission Date: 20200122
  Serious: Yes (Other)
  Sender: FDA-Public Use
  Company Number: FR-TEVA-2019-FR-1130361

PATIENT
  Age: 62 Year
  Sex: Male
  Weight: 93 kg

DRUGS (1)
  1. VINCRISTINE TEVA 0,1 POUR CENT (1 MG/1 ML), SOLUTION INJECTABLE (I.V.) [Suspect]
     Active Substance: VINCRISTINE
     Indication: CENTRAL NERVOUS SYSTEM LYMPHOMA
     Dosage: 2 MILLIGRAM PER 2 WEEKS
     Route: 041
     Dates: start: 20190626, end: 20190902

REACTIONS (1)
  - Hypoaesthesia [Recovering/Resolving]

NARRATIVE: CASE EVENT DATE: 201909
